FAERS Safety Report 10581097 (Version 1)
Quarter: 2014Q4

REPORT INFORMATION
  Report Type: Spontaneous
  Country: GB (occurrence: None)
  Receive Date: 20141110
  Receipt Date: 20141110
  Transmission Date: 20150529
  Serious: Yes (Other)
  Sender: FDA-Public Use
  Company Number: 2014OME00001

PATIENT
  Age: 35 Year
  Sex: Female

DRUGS (5)
  1. ONDANSETRON. [Suspect]
     Active Substance: ONDANSETRON
     Route: 042
  2. CEFUROXIME. [Concomitant]
     Active Substance: CEFUROXIME
  3. BUPIVACAINE [Concomitant]
     Active Substance: BUPIVACAINE
  4. DIAMORPHINE [Concomitant]
     Active Substance: DIACETYLMORPHINE
  5. PHENYLEPHRINE [Suspect]
     Active Substance: PHENYLEPHRINE\PHENYLEPHRINE HYDROCHLORIDE
     Indication: PROPHYLAXIS
     Dosage: 67 MG, CONTINUOUS/MIN, INTRAVENOUS
     Route: 042

REACTIONS (2)
  - Ventricular tachycardia [None]
  - Hypotension [None]
